FAERS Safety Report 9890923 (Version 1)
Quarter: 2014Q1

REPORT INFORMATION
  Report Type: Report from Study
  Country: FR (occurrence: FR)
  Receive Date: 20140212
  Receipt Date: 20140212
  Transmission Date: 20141002
  Serious: Yes (Hospitalization)
  Sender: FDA-Public Use
  Company Number: FR-ROCHE-1346248

PATIENT
  Sex: Female

DRUGS (5)
  1. RITUXIMAB [Suspect]
     Indication: RHEUMATOID ARTHRITIS
     Route: 065
     Dates: start: 20081028, end: 20090120
  2. RITUXIMAB [Suspect]
     Route: 065
     Dates: start: 20081114
  3. METHOTREXATE [Concomitant]
     Route: 065
     Dates: start: 20081028
  4. CORTANCYL [Concomitant]
     Route: 065
     Dates: start: 20081028
  5. CORTANCYL [Concomitant]
     Route: 065
     Dates: start: 20081114

REACTIONS (3)
  - Foot deformity [Recovered/Resolved]
  - Vulvovaginal mycotic infection [Recovered/Resolved]
  - Gastroenteritis [Recovered/Resolved]
